FAERS Safety Report 4553919-5 (Version None)
Quarter: 2005Q1

REPORT INFORMATION
  Report Type: 
  Country: None (occurrence: None)
  Receive Date: 20050113
  Receipt Date: 20050113
  Transmission Date: 20050727
  Serious: Yes (Death, Life-Threatening, Hospitalization, Other)
  Sender: FDA-Public Use
  Company Number: None

PATIENT
  Age: 69 Year
  Sex: Male
  Weight: 72.8 kg

DRUGS (9)
  1. BEXTRA [Suspect]
     Indication: GOUT
     Dosage: 10 MG PO DAILY
     Route: 048
  2. DOBUTAMINE HCL [Concomitant]
  3. ASPIRIN [Concomitant]
  4. COUMADIN [Concomitant]
  5. AMIODARONE HCL [Concomitant]
  6. BUMEX [Concomitant]
  7. SYNTHROID [Concomitant]
  8. COZAAR [Concomitant]
  9. FOLIC ACID [Concomitant]

REACTIONS (4)
  - ASCITES [None]
  - DIARRHOEA [None]
  - DYSPNOEA EXACERBATED [None]
  - GENERALISED OEDEMA [None]
